FAERS Safety Report 18352282 (Version 8)
Quarter: 2022Q1

REPORT INFORMATION
  Report Type: Report from Study
  Country: US (occurrence: US)
  Receive Date: 20201006
  Receipt Date: 20220112
  Transmission Date: 20220423
  Serious: Yes (Hospitalization)
  Sender: FDA-Public Use
  Company Number: NVSC2020US269824

PATIENT
  Age: 78 Year
  Sex: Female
  Weight: 45.805 kg

DRUGS (5)
  1. TREPROSTINIL [Suspect]
     Active Substance: TREPROSTINIL
     Indication: Pulmonary arterial hypertension
     Dosage: 95 NG/KG/MIN
     Route: 042
     Dates: start: 20200909
  2. TREPROSTINIL [Suspect]
     Active Substance: TREPROSTINIL
     Dosage: 95 NG/KG/MIN (TREPROSTINIL 1MG/ML)
     Route: 042
     Dates: start: 20200909
  3. TREPROSTINIL [Suspect]
     Active Substance: TREPROSTINIL
     Dosage: 93 NG/KG/MIN, CONTINUES
     Route: 042
     Dates: start: 20200909
  4. TREPROSTINIL [Suspect]
     Active Substance: TREPROSTINIL
     Dosage: UNK
     Route: 065
  5. AMLODIPINE [Concomitant]
     Active Substance: AMLODIPINE BESYLATE
     Indication: Product used for unknown indication
     Dosage: UNK
     Route: 065

REACTIONS (7)
  - Meningitis Escherichia [Unknown]
  - Urinary tract infection [Unknown]
  - Pain in extremity [Unknown]
  - Arthralgia [Unknown]
  - Rash [Unknown]
  - Dyspnoea [Unknown]
  - Oedema peripheral [Unknown]

NARRATIVE: CASE EVENT DATE: 20211204
